FAERS Safety Report 14381912 (Version 1)
Quarter: 2018Q1

REPORT INFORMATION
  Report Type: Spontaneous
  Country: US (occurrence: US)
  Receive Date: 20180111
  Receipt Date: 20180111
  Transmission Date: 20180509
  Serious: Yes (Disabling)
  Sender: FDA-Public Use
  Company Number: None

PATIENT
  Age: 55 Year
  Weight: 47.25 kg

DRUGS (5)
  1. CIPRODEX [Suspect]
     Active Substance: CIPROFLOXACIN HYDROCHLORIDE\DEXAMETHASONE
     Indication: INNER EAR DISORDER
     Dosage: ?          QUANTITY:2 DROP(S);?
     Route: 001
     Dates: start: 20171230, end: 20180102
  2. ZYRTEC [Concomitant]
     Active Substance: CETIRIZINE HYDROCHLORIDE
  3. CIPRODEX [Suspect]
     Active Substance: CIPROFLOXACIN HYDROCHLORIDE\DEXAMETHASONE
     Indication: EAR SWELLING
     Dosage: ?          QUANTITY:2 DROP(S);?
     Route: 001
     Dates: start: 20171230, end: 20180102
  4. FINACEA [Concomitant]
     Active Substance: AZELAIC ACID
  5. VITAMIN D [Concomitant]
     Active Substance: CHOLECALCIFEROL

REACTIONS (9)
  - Oral mucosal blistering [None]
  - Vomiting [None]
  - Stomatitis [None]
  - Dizziness [None]
  - Tongue blistering [None]
  - Pain [None]
  - Therapy cessation [None]
  - Blister [None]
  - Dyspnoea [None]

NARRATIVE: CASE EVENT DATE: 20180102
